FAERS Safety Report 4654757-5 (Version None)
Quarter: 2005Q2

REPORT INFORMATION
  Report Type: 
  Country: None (occurrence: None)
  Receive Date: 20050505
  Receipt Date: 20050505
  Transmission Date: 20051028
  Serious: Yes (Other)
  Sender: FDA-Public Use
  Company Number: None

PATIENT
  Age: 41 Year
  Sex: Female
  Weight: 60 kg

DRUGS (5)
  1. REMODULIN [Suspect]
     Indication: PULMONARY HYPERTENSION
     Dosage: 72NG/KG/MIN   CONT   SUBCUTANEO
     Route: 058
     Dates: start: 20040810, end: 20050411
  2. COUMADIN [Concomitant]
  3. ELAVIL [Concomitant]
  4. NEURONTIN [Concomitant]
  5. VIAGRA [Concomitant]

REACTIONS (11)
  - ACNE [None]
  - DIFFICULTY IN WALKING [None]
  - ECCHYMOSIS [None]
  - INJECTION SITE ERYTHEMA [None]
  - INJECTION SITE INDURATION [None]
  - INJECTION SITE REACTION [None]
  - PAIN [None]
  - PRURITUS [None]
  - RASH [None]
  - RASH PUSTULAR [None]
  - SWELLING [None]
